FAERS Safety Report 26016302 (Version 2)
Quarter: 2025Q4

REPORT INFORMATION
  Report Type: Spontaneous
  Country: US (occurrence: US)
  Receive Date: 20251110
  Receipt Date: 20251123
  Transmission Date: 20260119
  Serious: No
  Sender: LUPIN
  Company Number: US-LUPIN PHARMACEUTICALS INC.-2025-10036

PATIENT

DRUGS (3)
  1. TOLVAPTAN [Suspect]
     Active Substance: TOLVAPTAN
     Indication: Congenital cystic kidney disease
     Dosage: 90 MILLIGRAM, QD, TAKE ONE 90 MG TABLET BY MOUTH WHEN YOU WAKE UP
  2. TOLVAPTAN [Suspect]
     Active Substance: TOLVAPTAN
     Indication: Congenital cystic kidney disease
     Dosage: 30 MILLIGRAM, QD, . TAKE ONE 30 MG TABLET BY MOUTH APPROXIMATELY 8 HOURS LATER
  3. JYNARQUE [Concomitant]
     Active Substance: TOLVAPTAN
     Indication: Product used for unknown indication
     Dosage: UNK, 90 MG-30 MG TAB PAK
     Route: 065

REACTIONS (2)
  - Illness [Recovered/Resolved]
  - Product dose omission issue [Unknown]
